FAERS Safety Report 8440363-3 (Version None)
Quarter: 2012Q2

REPORT INFORMATION
  Report Type: 
  Country: None (occurrence: None)
  Receive Date: 20120615
  Receipt Date: 20120608
  Transmission Date: 20120825
  Serious: Yes (Other)
  Sender: FDA-Public Use
  Company Number: US-PFIZER INC-2010034405

PATIENT
  Sex: Female

DRUGS (8)
  1. DILANTIN [Suspect]
     Dosage: 275 MG, 1X/DAY
     Dates: start: 20041223
  2. DILANTIN [Suspect]
     Dosage: 100 MG 2 CAPSULE EVERY AFTERNOON
     Dates: start: 20061229
  3. DILANTIN-125 [Suspect]
     Dosage: UNK
     Dates: start: 19950320
  4. DILANTIN [Suspect]
     Dosage: 100 MG ONE CAPSULE EVERY AFTERNOON
     Dates: start: 20091005
  5. DILANTIN [Suspect]
     Indication: GRAND MAL CONVULSION
     Dosage: 275 MG, 3X/DAY
     Dates: start: 20041110
  6. DILANTIN-125 [Suspect]
     Indication: GRAND MAL CONVULSION
     Dosage: 275 MG, UNK
  7. DILANTIN-125 [Suspect]
     Dosage: 300 MG, 1X/DAY
  8. DILANTIN [Suspect]
     Dosage: 50 MG, 1.5 TABLETS EVERY AFTERNOON
     Dates: start: 20061229

REACTIONS (1)
  - STEVENS-JOHNSON SYNDROME [None]
